FAERS Safety Report 16315128 (Version 4)
Quarter: 2019Q3

REPORT INFORMATION
  Report Type: Spontaneous
  Country: JP (occurrence: JP)
  Receive Date: 20190515
  Receipt Date: 20190702
  Transmission Date: 20191004
  Serious: Yes (Death, Other)
  Sender: FDA-Public Use
  Company Number: JP-ASTRAZENECA-2019SE70653

PATIENT
  Age: 25664 Day
  Sex: Female

DRUGS (5)
  1. TSUMURA SEIHAITO EXTRACT [Concomitant]
     Indication: AIRWAY SECRETION CLEARANCE THERAPY
     Route: 048
     Dates: start: 20190206, end: 20190505
  2. TAGRISSO [Suspect]
     Active Substance: OSIMERTINIB
     Indication: NON-SMALL CELL LUNG CANCER
     Route: 048
     Dates: start: 20190221, end: 20190502
  3. RANMARK [Concomitant]
     Active Substance: DENOSUMAB
     Indication: METASTASES TO BONE
     Route: 058
     Dates: start: 20190221, end: 20190419
  4. DENOTAS [Concomitant]
     Active Substance: CALCIUM CARBONATE\CHOLECALCIFEROL\MAGNESIUM CARBONATE
     Indication: HYPOCALCAEMIA
     Route: 048
     Dates: start: 20190221, end: 20190505
  5. FENTANYL. [Concomitant]
     Active Substance: FENTANYL
     Dosage: 1.0MG UNKNOWN
     Route: 062

REACTIONS (3)
  - Disseminated intravascular coagulation [Fatal]
  - Platelet count decreased [Fatal]
  - Cardiac failure [Fatal]

NARRATIVE: CASE EVENT DATE: 20190502
